FAERS Safety Report 21471222 (Version 2)
Quarter: 2022Q4

REPORT INFORMATION
  Report Type: Spontaneous
  Country: US (occurrence: US)
  Receive Date: 20221018
  Receipt Date: 20221102
  Transmission Date: 20230112
  Serious: No
  Sender: FDA-Public Use
  Company Number: US-BRISTOL-MYERS SQUIBB COMPANY-2022-122385

PATIENT
  Age: 86 Year
  Sex: Male
  Weight: 54.43 kg

DRUGS (2)
  1. REVLIMID [Suspect]
     Active Substance: LENALIDOMIDE
     Indication: Diffuse large B-cell lymphoma
     Dosage: FREQUENCY: 3W, 1W OFF
     Route: 048
     Dates: start: 20220706
  2. REVLIMID [Suspect]
     Active Substance: LENALIDOMIDE
     Indication: Plasma cell myeloma

REACTIONS (5)
  - Vitamin D decreased [Unknown]
  - Diarrhoea [Unknown]
  - Off label use [Unknown]
  - Thirst [Unknown]
  - Weight decreased [Unknown]

NARRATIVE: CASE EVENT DATE: 20221016
